FAERS Safety Report 18146891 (Version 1)
Quarter: 2020Q3

REPORT INFORMATION
  Report Type: Spontaneous
  Country: US (occurrence: US)
  Receive Date: 20200813
  Receipt Date: 20200813
  Transmission Date: 20201103
  Serious: No
  Sender: FDA-Public Use
  Company Number: US-SA-2020SA206083

PATIENT

DRUGS (6)
  1. PLAQUENIL [Suspect]
     Active Substance: HYDROXYCHLOROQUINE SULFATE
     Indication: ARTHRITIS
     Dosage: UNK
  2. HUMIRA [Suspect]
     Active Substance: ADALIMUMAB
  3. REMICADE [Suspect]
     Active Substance: INFLIXIMAB
  4. ARAVA [Suspect]
     Active Substance: LEFLUNOMIDE
     Indication: ARTHRITIS
     Dosage: UNK
  5. ORENCIA [Suspect]
     Active Substance: ABATACEPT
  6. METHOTREXATE. [Suspect]
     Active Substance: METHOTREXATE
     Indication: PAIN
     Dosage: UNK

REACTIONS (5)
  - Unevaluable event [Unknown]
  - Mouth ulceration [Unknown]
  - Drug ineffective [Unknown]
  - Illness [Unknown]
  - Treatment failure [Unknown]
